FAERS Safety Report 8375628 (Version 2)
Quarter: 2013Q1

REPORT INFORMATION
  Report Type: Report from Study
  Country: US (occurrence: US)
  Receive Date: 20120129
  Receipt Date: 20130129
  Transmission Date: 20140127
  Serious: No
  Sender: FDA-Public Use
  Company Number: US-ABBOTT-11P-163-0883925-00

PATIENT
  Sex: Female
  Weight: 100.79 kg

DRUGS (4)
  1. HUMIRA 40 MG/0.8 ML PEN [Suspect]
     Indication: PSORIATIC ARTHROPATHY
     Route: 058
     Dates: start: 20111026
  2. ENBREL [Suspect]
     Indication: PSORIATIC ARTHROPATHY
     Dates: start: 2009, end: 201105
  3. ENBREL [Suspect]
     Dates: start: 201107, end: 201110
  4. AZATHIOPRINE [Concomitant]
     Indication: PSORIATIC ARTHROPATHY
     Dates: start: 2010

REACTIONS (3)
  - Diarrhoea [Recovered/Resolved]
  - Proctitis ulcerative [Recovered/Resolved]
  - Large intestine polyp [Recovered/Resolved]
